FAERS Safety Report 19097739 (Version 1)
Quarter: 2021Q2

REPORT INFORMATION
  Report Type: Spontaneous
  Country: US (occurrence: US)
  Receive Date: 20210406
  Receipt Date: 20210406
  Transmission Date: 20210717
  Serious: No
  Sender: FDA-Public Use
  Company Number: US-PFIZER INC-2020421127

PATIENT
  Age: 78 Year
  Sex: Female

DRUGS (2)
  1. XELJANZ [Suspect]
     Active Substance: TOFACITINIB CITRATE
     Indication: CHRONIC KIDNEY DISEASE
     Dosage: 5 MG, 2X/DAY (XELJANZ 5 MG PO (ORALLY) BID (TWICE A DAY)
     Route: 048
  2. XELJANZ [Suspect]
     Active Substance: TOFACITINIB CITRATE
     Dosage: 5 MG, 1X/DAY (ALTERED TO QD, (ONCE A DAY) 30?DAY SUPPLY)

REACTIONS (3)
  - Renal disorder [Unknown]
  - Product use in unapproved indication [Unknown]
  - Off label use [Unknown]
